FAERS Safety Report 5522461-7 (Version None)
Quarter: 2007Q4

REPORT INFORMATION
  Report Type: 
  Country: None (occurrence: None)
  Receive Date: 20071120
  Receipt Date: 20071114
  Transmission Date: 20080405
  Serious: Yes (Other)
  Sender: FDA-Public Use
  Company Number: US-SANOFI-SYNTHELABO-A03200706528

PATIENT
  Sex: Male
  Weight: 92.97 kg

DRUGS (4)
  1. SINGULAIR [Concomitant]
     Dosage: UNK
     Route: 065
  2. ASPIRIN [Concomitant]
     Dosage: UNK
     Route: 065
  3. VYTORIN [Concomitant]
     Dosage: UNK
     Route: 065
  4. PLAVIX [Suspect]
     Indication: STENT PLACEMENT
     Route: 048
     Dates: start: 20050101

REACTIONS (3)
  - CATARACT [None]
  - MACULAR DEGENERATION [None]
  - VISUAL DISTURBANCE [None]
